FAERS Safety Report 10043211 (Version 1)
Quarter: 2014Q1

REPORT INFORMATION
  Report Type: Spontaneous
  Country: US (occurrence: US)
  Receive Date: 20140328
  Receipt Date: 20140328
  Transmission Date: 20141002
  Serious: Yes (Other)
  Sender: FDA-Public Use
  Company Number: US-SUN PHARMACEUTICAL INDUSTRIES LTD-2014SUN00648

PATIENT
  Age: 56 Year
  Sex: Male

DRUGS (3)
  1. DOCETAXEL [Suspect]
     Indication: GASTRIC CANCER
     Route: 065
  2. OXALIPLATIN 5 MG/ML, CONCENTRATE FOR SOLUTION FOR INFUSION [Suspect]
     Indication: GASTRIC CANCER
     Route: 065
  3. 5-FU [Suspect]

REACTIONS (2)
  - Pneumonia [Unknown]
  - Neuropathy peripheral [Unknown]
